FAERS Safety Report 23960768 (Version 1)
Quarter: 2024Q2

REPORT INFORMATION
  Report Type: Report from Study
  Country: CN (occurrence: CN)
  Receive Date: 20240611
  Receipt Date: 20240611
  Transmission Date: 20240716
  Serious: Yes (Other)
  Sender: FDA-Public Use
  Company Number: CN-Accord-428705

PATIENT

DRUGS (2)
  1. TIGECYCLINE [Suspect]
     Active Substance: TIGECYCLINE
     Indication: Pneumonia bacterial
     Dosage: 150-300 MILLION UNIT, INTRAVENOUSLY, NEBULIZED, OR A COMBINATION OF BOTH.
  2. POLYMYXIN B SULFATE [Suspect]
     Active Substance: POLYMYXIN B SULFATE
     Indication: Pneumonia bacterial
     Dosage: FOR 3 HOURS

REACTIONS (1)
  - Neurotoxicity [Unknown]
